FAERS Safety Report 22195301 (Version 12)
Quarter: 2023Q4

REPORT INFORMATION
  Report Type: Spontaneous
  Country: CA (occurrence: CA)
  Receive Date: 20230411
  Receipt Date: 20231205
  Transmission Date: 20240109
  Serious: Yes (Hospitalization, Other)
  Sender: FDA-Public Use
  Company Number: CA-CELLTRION INC.-2023CA002339

PATIENT

DRUGS (15)
  1. INFLECTRA [Suspect]
     Active Substance: INFLIXIMAB-DYYB
     Indication: Hidradenitis
     Dosage: 292 MG, WEEK 0, 2, 6 AND THEN EVERY 8 WEEKS (INDUCTION W0)
     Route: 042
     Dates: start: 20230222
  2. INFLECTRA [Suspect]
     Active Substance: INFLIXIMAB-DYYB
     Dosage: 292 MG INDUCTION W0, 2, 6 THEN MAINTENANCE Q4 WEEKS
     Route: 042
     Dates: start: 20230222, end: 20230309
  3. INFLECTRA [Suspect]
     Active Substance: INFLIXIMAB-DYYB
     Dosage: 292 MG, WEEK 0, 2, 6 AND THEN EVERY 8 WEEKS
     Route: 042
     Dates: start: 20230309
  4. INFLECTRA [Suspect]
     Active Substance: INFLIXIMAB-DYYB
     Dosage: 10 MG/KG (570 MG), INDUCTION W6 AND MAINTENANCE Q4 WEEKS
     Route: 042
     Dates: start: 20230405
  5. INFLECTRA [Suspect]
     Active Substance: INFLIXIMAB-DYYB
     Dosage: 10 MG/KG INDUCTION W6 AND MAINTENANCE Q4 WEEKS
     Route: 042
     Dates: start: 20230405, end: 20230825
  6. INFLECTRA [Suspect]
     Active Substance: INFLIXIMAB-DYYB
     Dosage: 10 MG/KG INDUCTION W6 AND MAINTENANCE Q4 WEEKS
     Route: 042
     Dates: start: 20230504
  7. INFLECTRA [Suspect]
     Active Substance: INFLIXIMAB-DYYB
     Dosage: 10 MG/KG INDUCTION W6 AND MAINTENANCE Q4 WEEKS
     Route: 042
     Dates: start: 20230602
  8. INFLECTRA [Suspect]
     Active Substance: INFLIXIMAB-DYYB
     Dosage: 580 MG, AFTER 4 WEEKS
     Route: 042
     Dates: start: 20230629
  9. INFLECTRA [Suspect]
     Active Substance: INFLIXIMAB-DYYB
     Dosage: 580 MG, INDUCTION W6 AND MAINTENANCE Q4 WEEKS
     Route: 042
     Dates: start: 20230726
  10. INFLECTRA [Suspect]
     Active Substance: INFLIXIMAB-DYYB
     Dosage: 580 MG, 4 WEEKS AND 2 DAYS
     Route: 042
     Dates: start: 20230825
  11. INFLECTRA [Suspect]
     Active Substance: INFLIXIMAB-DYYB
     Dosage: 5 MG/KG EVERY 4 WEEKS
     Route: 042
     Dates: start: 20230926
  12. INFLECTRA [Suspect]
     Active Substance: INFLIXIMAB-DYYB
     Dosage: 300 MG (5 MG/KG), EVERY 4 WEEKS
     Route: 042
     Dates: start: 20231024
  13. INFLECTRA [Suspect]
     Active Substance: INFLIXIMAB-DYYB
     Dosage: 5 MG/KG,EVERY 8 WEEKS(295 MG 4 WEEKS AND 2 DAYS AFTER LAST TREATMENT )
     Route: 042
     Dates: start: 20231124
  14. METFORMIN [Concomitant]
     Active Substance: METFORMIN HYDROCHLORIDE
     Dosage: 1 DF
  15. SULFADIAZINE\TRIMETHOPRIM [Concomitant]
     Active Substance: SULFADIAZINE\TRIMETHOPRIM
     Dosage: 1 DF

REACTIONS (9)
  - Wound [Not Recovered/Not Resolved]
  - Groin abscess [Recovered/Resolved]
  - Condition aggravated [Recovering/Resolving]
  - Drug ineffective for unapproved indication [Unknown]
  - Alopecia [Not Recovered/Not Resolved]
  - Flat affect [Not Recovered/Not Resolved]
  - Off label use [Unknown]
  - Product storage error [Unknown]
  - Inappropriate schedule of product administration [Unknown]

NARRATIVE: CASE EVENT DATE: 20230101
